FAERS Safety Report 5676769-5 (Version None)
Quarter: 2008Q2

REPORT INFORMATION
  Report Type: 
  Country: None (occurrence: None)
  Receive Date: 20080311
  Receipt Date: 20080102
  Transmission Date: 20081010
  Serious: No
  Sender: FDA-Public Use
  Company Number: 002#2#2008-00002

PATIENT
  Sex: Female

DRUGS (1)
  1. NEUPRO [Suspect]
     Indication: RESTLESS LEGS SYNDROME
     Dosage: MG/24H,1 IN 1 D,TRANSDERMAL
     Route: 062

REACTIONS (4)
  - HEART RATE INCREASED [None]
  - INTENTIONAL DRUG MISUSE [None]
  - IRRITABILITY [None]
  - NAUSEA [None]
